FAERS Safety Report 9786601 (Version 1)
Quarter: 2013Q4

REPORT INFORMATION
  Report Type: Spontaneous
  Country: IT (occurrence: IT)
  Receive Date: 20131227
  Receipt Date: 20131227
  Transmission Date: 20140711
  Serious: Yes (Hospitalization)
  Sender: FDA-Public Use
  Company Number: PHHY2013IT150652

PATIENT
  Sex: Male

DRUGS (9)
  1. AMOXICILLIN-CLAVULANIC ACID [Suspect]
     Indication: ANTIBIOTIC PROPHYLAXIS
     Dosage: 6.6 G, UNK
     Route: 042
     Dates: start: 20131205, end: 20131210
  2. TOTALIP [Suspect]
     Indication: HYPERCHOLESTEROLAEMIA
     Dosage: 20 MG, QD
     Route: 048
     Dates: start: 2011
  3. RETACRIT [Concomitant]
  4. CORDARONE [Concomitant]
  5. ZANEDIP [Concomitant]
  6. PLAQUENIL [Concomitant]
  7. DILATREND [Concomitant]
  8. TRIATEC [Concomitant]
  9. CLEXANE [Concomitant]

REACTIONS (4)
  - Renal failure [Recovered/Resolved]
  - Rhabdomyolysis [Recovered/Resolved]
  - Myoglobin blood increased [Recovered/Resolved]
  - Blood creatine phosphokinase increased [Recovered/Resolved]
